FAERS Safety Report 25852571 (Version 1)
Quarter: 2025Q3

REPORT INFORMATION
  Report Type: Spontaneous
  Country: US (occurrence: None)
  Receive Date: 20250926
  Receipt Date: 20250926
  Transmission Date: 20251020
  Serious: Yes (Other)
  Sender: FDA-CTU
  Company Number: None

PATIENT
  Sex: Female

DRUGS (4)
  1. XOLAIR [Suspect]
     Active Substance: OMALIZUMAB
     Indication: Urticaria
     Route: 058
     Dates: start: 20250716
  2. ALBUTEROL SULFATE [Concomitant]
     Active Substance: ALBUTEROL SULFATE
  3. LORATADINE TAB 10MG [Concomitant]
  4. PROBIOTIC  CAP [Concomitant]

REACTIONS (8)
  - Swelling face [None]
  - Swollen tongue [None]
  - Lip swelling [None]
  - Lip disorder [None]
  - Rash [None]
  - Pruritus [None]
  - Urticaria [None]
  - Product prescribing issue [None]
